FAERS Safety Report 10430152 (Version 1)
Quarter: 2014Q3

REPORT INFORMATION
  Report Type: Spontaneous
  Country: US (occurrence: None)
  Receive Date: 20140902
  Receipt Date: 20140902
  Transmission Date: 20150326
  Serious: Yes (Other)
  Sender: FDA-Public Use
  Company Number: None

PATIENT
  Age: 70 Year
  Sex: Male
  Weight: 92.6 kg

DRUGS (1)
  1. RIVAROXABAN [Suspect]
     Active Substance: RIVAROXABAN
     Indication: PULMONARY EMBOLISM
     Dosage: MG         PO?~02/03/2014 THRU N/A
     Route: 048
     Dates: start: 20140203

REACTIONS (3)
  - Rectal haemorrhage [None]
  - Gastric haemorrhage [None]
  - Haematochezia [None]

NARRATIVE: CASE EVENT DATE: 20140731
